FAERS Safety Report 22058294 (Version 1)
Quarter: 2023Q1

REPORT INFORMATION
  Report Type: Spontaneous
  Country: US (occurrence: None)
  Receive Date: 20230303
  Receipt Date: 20230303
  Transmission Date: 20230418
  Serious: Yes (Death, Other)
  Sender: FDA-Public Use
  Company Number: US-MICRO LABS LIMITED-ML2023-01142

PATIENT
  Age: 49 Year
  Sex: Female

DRUGS (3)
  1. CAFFEINE CITRATE [Suspect]
     Active Substance: CAFFEINE CITRATE
  2. ACETAMINOPHEN [Suspect]
     Active Substance: ACETAMINOPHEN
  3. BUTABARBITAL [Suspect]
     Active Substance: BUTABARBITAL

REACTIONS (9)
  - Hypotension [Fatal]
  - Depressed level of consciousness [Fatal]
  - Hepatotoxicity [Fatal]
  - Coagulopathy [Fatal]
  - Leukocytosis [Fatal]
  - Rhabdomyolysis [Fatal]
  - Anion gap [Fatal]
  - Metabolic acidosis [Fatal]
  - Acute kidney injury [Fatal]
